FAERS Safety Report 8231226-7 (Version None)
Quarter: 2012Q1

REPORT INFORMATION
  Report Type: 
  Country: None (occurrence: None)
  Receive Date: 20120323
  Receipt Date: 20120316
  Transmission Date: 20120608
  Serious: Yes (Hospitalization)
  Sender: FDA-Public Use
  Company Number: DE-SANOFI-AVENTIS-2012SA002281

PATIENT
  Age: 63 Year
  Sex: Female
  Weight: 87 kg

DRUGS (7)
  1. BEVACIZUMAB [Suspect]
     Route: 042
     Dates: start: 20111122
  2. BEVACIZUMAB [Suspect]
     Route: 042
     Dates: start: 20111206, end: 20111206
  3. DOCETAXEL [Suspect]
     Route: 042
  4. DOCETAXEL [Suspect]
     Route: 042
     Dates: start: 20111206, end: 20111206
  5. MARCUMAR [Concomitant]
     Indication: THROMBOSIS
     Dates: start: 20100901
  6. DOCETAXEL [Suspect]
     Route: 042
     Dates: start: 20111129
  7. BEVACIZUMAB [Suspect]
     Route: 042

REACTIONS (2)
  - GENERAL PHYSICAL HEALTH DETERIORATION [None]
  - VOMITING [None]
